FAERS Safety Report 16758816 (Version 2)
Quarter: 2019Q3

REPORT INFORMATION
  Report Type: Spontaneous
  Country: US (occurrence: US)
  Receive Date: 20190830
  Receipt Date: 20190926
  Transmission Date: 20191005
  Serious: Yes (Other)
  Sender: FDA-Public Use
  Company Number: US-ABBVIE-19K-163-2904688-00

PATIENT
  Age: 61 Year
  Sex: Male

DRUGS (3)
  1. HUMIRA [Suspect]
     Active Substance: ADALIMUMAB
     Route: 058
  2. INSULIN [Concomitant]
     Active Substance: INSULIN NOS
     Indication: PRODUCT USED FOR UNKNOWN INDICATION
  3. HUMIRA [Suspect]
     Active Substance: ADALIMUMAB
     Indication: RHEUMATOID ARTHRITIS
     Route: 058
     Dates: start: 2018

REACTIONS (5)
  - Thinking abnormal [Unknown]
  - Tremor [Unknown]
  - Product dispensing error [Unknown]
  - Wrong technique in product usage process [Recovered/Resolved]
  - Seizure [Unknown]

NARRATIVE: CASE EVENT DATE: 2019
